FAERS Safety Report 8100592-5 (Version None)
Quarter: 2012Q1

REPORT INFORMATION
  Report Type: 
  Country: None (occurrence: None)
  Receive Date: 20120129
  Receipt Date: 20111212
  Transmission Date: 20120608
  Serious: No
  Sender: FDA-Public Use
  Company Number: US-ABBOTT-11P-163-0875385-00

PATIENT
  Sex: Female

DRUGS (12)
  1. COMPAZINE [Concomitant]
     Indication: NAUSEA
     Dosage: NOT REPORTED
  2. TRAMADOL HCL [Concomitant]
     Indication: PAIN
     Dosage: NOT REPORTED
  3. RELPAX [Concomitant]
     Indication: MIGRAINE
  4. ONDANSETRON HCL [Concomitant]
     Indication: VOMITING
     Dosage: NOT REPORTED
  5. HUMIRA [Suspect]
     Indication: RHEUMATOID ARTHRITIS
     Dates: start: 20110826
  6. PROTONIX [Concomitant]
     Indication: PROPHYLAXIS
     Dosage: NOT REPORTED
  7. VIVELLE-DOT [Concomitant]
     Indication: HORMONE REPLACEMENT THERAPY
     Route: 062
  8. ATIVAN [Concomitant]
     Indication: ANXIETY
     Dosage: 1-2 DAILY
  9. BUTRANS [Concomitant]
     Indication: PAIN
     Dosage: 10 MCG/HR
     Route: 062
  10. LEVOTHYROXINE SODIUM [Concomitant]
     Indication: HYPOTHYROIDISM
  11. OXYCODONE HCL [Concomitant]
     Indication: PAIN
     Dosage: 1-2  DAILY
  12. AMBIEN [Concomitant]
     Indication: SLEEP DISORDER THERAPY
     Dosage: AT HS

REACTIONS (12)
  - INJECTION SITE HAEMATOMA [None]
  - NASOPHARYNGITIS [None]
  - MIGRAINE [None]
  - CHILLS [None]
  - ARTHRALGIA [None]
  - INJECTION SITE PAIN [None]
  - PAIN [None]
  - PYREXIA [None]
  - SINUS HEADACHE [None]
  - NASAL CONGESTION [None]
  - RHINORRHOEA [None]
  - SNEEZING [None]
